FAERS Safety Report 8479728-2 (Version None)
Quarter: 2012Q2

REPORT INFORMATION
  Report Type: 
  Country: None (occurrence: None)
  Receive Date: 20120629
  Receipt Date: 20120628
  Transmission Date: 20120825
  Serious: Yes (Death)
  Sender: FDA-Public Use
  Company Number: GB-ROCHE-1036369

PATIENT
  Sex: Female

DRUGS (1)
  1. LUCENTIS [Suspect]
     Indication: PRODUCT USED FOR UNKNOWN INDICATION
     Route: 050

REACTIONS (4)
  - BREAST CANCER [None]
  - HYPERTENSION [None]
  - CEREBROVASCULAR ACCIDENT [None]
  - ATRIAL FIBRILLATION [None]
